FAERS Safety Report 6135029-9 (Version None)
Quarter: 2009Q1

REPORT INFORMATION
  Report Type: 
  Country: None (occurrence: None)
  Receive Date: 20090327
  Receipt Date: 20090316
  Transmission Date: 20090719
  Serious: Yes (Disabling)
  Sender: FDA-Public Use
  Company Number: NO-PFIZER INC-2008097831

PATIENT

DRUGS (5)
  1. CHAMPIX [Suspect]
     Indication: SMOKING CESSATION THERAPY
     Dosage: 1 MG, 2X/DAY
     Route: 048
     Dates: start: 20070801, end: 20071001
  2. LEVOTHYROXINE SODIUM [Concomitant]
     Route: 048
  3. VALSARTAN [Concomitant]
     Route: 048
  4. ALBYL-E [Concomitant]
     Route: 048
  5. PNEUMOVAX 23 [Concomitant]
     Dosage: UNKNOWN
     Dates: start: 20070920

REACTIONS (2)
  - ANOSMIA [None]
  - DYSGEUSIA [None]
